FAERS Safety Report 6076591-4 (Version None)
Quarter: 2009Q1

REPORT INFORMATION
  Report Type: 
  Country: None (occurrence: None)
  Receive Date: 20090212
  Receipt Date: 20090212
  Transmission Date: 20090719
  Serious: No
  Sender: FDA-Public Use
  Company Number: None

PATIENT
  Age: 79 Year
  Sex: Male
  Weight: 97.36 kg

DRUGS (1)
  1. AMIODARONE HCL [Suspect]
     Dates: start: 20080314, end: 20080315

REACTIONS (1)
  - ATRIOVENTRICULAR BLOCK SECOND DEGREE [None]
